FAERS Safety Report 5139828-1 (Version None)
Quarter: 2006Q4

REPORT INFORMATION
  Report Type: 
  Country: None (occurrence: None)
  Receive Date: 20061026
  Receipt Date: 20061026
  Transmission Date: 20070319
  Serious: No
  Sender: FDA-Public Use
  Company Number: None

PATIENT
  Sex: Female
  Weight: 67.77 kg

DRUGS (13)
  1. CISPLATIN [Suspect]
     Dosage: 90 MG
  2. DOXORUBICIN HYDROCHLORIDE [Suspect]
     Dosage: 81 MG
  3. G-CSF (FILGRASTIM, AMGEN) [Suspect]
     Dosage: 6 MG
  4. TAXOL [Suspect]
     Dosage: 160 MG
  5. COMPAZINE [Concomitant]
  6. EMEND TRI-FOLD [Concomitant]
  7. HYZAAR [Concomitant]
  8. LEVOTHYROXINE SODIUM [Concomitant]
  9. LORATADINE [Concomitant]
  10. POTASSIUM CHLORIDE [Concomitant]
  11. PRAVACHOL [Concomitant]
  12. TRANXENE T [Concomitant]
  13. DEXAMETHASONE TAB [Concomitant]

REACTIONS (3)
  - FATIGUE [None]
  - HYPOKALAEMIA [None]
  - HYPONATRAEMIA [None]
